FAERS Safety Report 18200287 (Version 2)
Quarter: 2020Q3

REPORT INFORMATION
  Report Type: Spontaneous
  Country: US (occurrence: US)
  Receive Date: 20200826
  Receipt Date: 20200929
  Transmission Date: 20201103
  Serious: No
  Sender: FDA-Public Use
  Company Number: US-KYOWAKIRIN-2020BKK013576

PATIENT

DRUGS (2)
  1. CRYSVITA [Suspect]
     Active Substance: BUROSUMAB-TWZA
     Indication: HEREDITARY HYPOPHOSPHATAEMIC RICKETS
     Dosage: COMBINED STRENGTH 20 MG/ML AND 30 MG/ML TO ACHIEVE DOSE OF 80 MG, Q4 WEEKS
     Route: 058
     Dates: start: 201910
  2. CRYSVITA [Suspect]
     Active Substance: BUROSUMAB-TWZA
     Indication: HEREDITARY HYPOPHOSPHATAEMIC RICKETS
     Dosage: COMBINED STRENGTH 20 MG/ML AND 30 MG/ML TO ACHIEVE DOSE OF 80 MG, Q4 WEEKS
     Route: 058
     Dates: start: 201910

REACTIONS (5)
  - Injection site irritation [Recovered/Resolved]
  - Injection site erythema [Unknown]
  - Injection site rash [Unknown]
  - Injection site mass [Recovered/Resolved]
  - Injection site pain [Unknown]

NARRATIVE: CASE EVENT DATE: 20200817
